FAERS Safety Report 10348248 (Version 1)
Quarter: 2014Q3

REPORT INFORMATION
  Report Type: Spontaneous
  Country: US (occurrence: US)
  Receive Date: 20140729
  Receipt Date: 20140729
  Transmission Date: 20150326
  Serious: Yes (Life-Threatening, Hospitalization, Other)
  Sender: FDA-Public Use
  Company Number: US-ACTAVIS-2014-16412

PATIENT
  Age: 18 Month
  Sex: Male

DRUGS (6)
  1. IMIPRAMINE (UNKNOWN) [Suspect]
     Active Substance: IMIPRAMINE
     Indication: DERMATITIS DIAPER
     Dosage: 30 MG, SINGLE
     Route: 062
  2. GABAPENTIN (AELLC) [Suspect]
     Active Substance: GABAPENTIN
     Indication: DERMATITIS DIAPER
     Dosage: 60 MG, SINGLE
     Route: 062
  3. LIDOCAINE HYDROCHLORIDE (WATSON LABORATORIES) [Suspect]
     Active Substance: LIDOCAINE HYDROCHLORIDE
     Indication: DERMATITIS DIAPER
     Dosage: 10 MG, SINGLE
     Route: 062
  4. CLONIDINE. [Suspect]
     Active Substance: CLONIDINE
     Indication: DERMATITIS DIAPER
     Dosage: 2 MG, SINGLE
     Route: 062
  5. MEFENAMIC ACID. [Suspect]
     Active Substance: MEFENAMIC ACID
     Indication: DERMATITIS DIAPER
     Dosage: 10 MG, SINGLE
     Route: 062
  6. KETAMINE (UNKNOWN) [Suspect]
     Active Substance: KETAMINE
     Indication: DERMATITIS DIAPER
     Dosage: 100 MG, SINGLE
     Route: 062

REACTIONS (7)
  - Unresponsive to stimuli [Recovered/Resolved]
  - Dyspnoea [Recovered/Resolved]
  - Sinus bradycardia [Recovered/Resolved]
  - Miosis [Recovered/Resolved]
  - Hypotension [Recovered/Resolved]
  - Intentional product misuse [Recovered/Resolved]
  - Hyporeflexia [Recovered/Resolved]
